FAERS Safety Report 20077190 (Version 1)
Quarter: 2021Q4

REPORT INFORMATION
  Report Type: Spontaneous
  Country: US (occurrence: US)
  Receive Date: 20211116
  Receipt Date: 20211116
  Transmission Date: 20220303
  Serious: Yes (Hospitalization)
  Sender: FDA-Public Use
  Company Number: US-TG THERAPEUTICS INC.-TGT002202

PATIENT
  Age: 72 Year
  Sex: Female
  Weight: 83.447 kg

DRUGS (1)
  1. UMBRALISIB [Suspect]
     Active Substance: UMBRALISIB
     Indication: Chronic lymphocytic leukaemia
     Dosage: 600 MILLIGRAM, QD
     Route: 048
     Dates: start: 20210713

REACTIONS (1)
  - Pneumonia [Unknown]

NARRATIVE: CASE EVENT DATE: 20211018
